FAERS Safety Report 10164050 (Version 1)
Quarter: 2014Q2

REPORT INFORMATION
  Report Type: Spontaneous
  Country: US (occurrence: US)
  Receive Date: 20140510
  Receipt Date: 20140510
  Transmission Date: 20141212
  Serious: No
  Sender: FDA-Public Use
  Company Number: US-BRISTOL-MYERS SQUIBB COMPANY-19862358

PATIENT
  Age: 67 Year
  Sex: Female
  Weight: 98.86 kg

DRUGS (3)
  1. BYETTA [Suspect]
     Indication: TYPE 2 DIABETES MELLITUS
     Route: 058
  2. NOVOLOG [Concomitant]
  3. LANTUS [Concomitant]

REACTIONS (3)
  - Abdominal pain upper [Unknown]
  - Nausea [Recovered/Resolved]
  - Weight decreased [Unknown]
